FAERS Safety Report 11788795 (Version 1)
Quarter: 2015Q4

REPORT INFORMATION
  Report Type: Spontaneous
  Country: US (occurrence: None)
  Receive Date: 20151130
  Receipt Date: 20151130
  Transmission Date: 20160305
  Serious: No
  Sender: FDA-Public Use
  Company Number: None

PATIENT
  Age: 4 Year
  Sex: Male
  Weight: 22.68 kg

DRUGS (2)
  1. SINGULAIR [Suspect]
     Active Substance: MONTELUKAST SODIUM
     Indication: ASTHMA
     Dosage: 1 AT BEDTIME
     Route: 048
  2. SINGULAIR [Suspect]
     Active Substance: MONTELUKAST SODIUM
     Indication: SEASONAL ALLERGY
     Dosage: 1 AT BEDTIME
     Route: 048

REACTIONS (5)
  - Personality disorder [None]
  - Nightmare [None]
  - Abnormal behaviour [None]
  - Abnormal dreams [None]
  - Weight increased [None]

NARRATIVE: CASE EVENT DATE: 20151118
